FAERS Safety Report 25685105 (Version 1)
Quarter: 2025Q3

REPORT INFORMATION
  Report Type: Report from Study
  Country: CA (occurrence: CA)
  Receive Date: 20250815
  Receipt Date: 20250815
  Transmission Date: 20251021
  Serious: Yes (Other)
  Sender: TEVA
  Company Number: CA-TEVA-VS-3357558

PATIENT
  Age: 71 Year
  Sex: Female

DRUGS (9)
  1. CINQAIR [Suspect]
     Active Substance: RESLIZUMAB
     Indication: Asthma
     Route: 042
     Dates: start: 20210521, end: 20220222
  2. PREDNISONE [Concomitant]
     Active Substance: PREDNISONE
     Indication: Product used for unknown indication
  3. SYMBICORT [Concomitant]
     Active Substance: BUDESONIDE\FORMOTEROL FUMARATE DIHYDRATE
     Indication: Product used for unknown indication
  4. CANDESARTAN [Concomitant]
     Active Substance: CANDESARTAN
     Indication: Product used for unknown indication
  5. PANTOPRAZOLE SODIUM [Concomitant]
     Active Substance: PANTOPRAZOLE SODIUM
     Indication: Product used for unknown indication
  6. VENTOLIN [Concomitant]
     Active Substance: ALBUTEROL SULFATE
     Indication: Product used for unknown indication
  7. DUPIXENT [Concomitant]
     Active Substance: DUPILUMAB
     Indication: Product used for unknown indication
  8. FASENRA [Concomitant]
     Active Substance: BENRALIZUMAB
     Indication: Product used for unknown indication
  9. BENRALIZUMAB [Concomitant]
     Active Substance: BENRALIZUMAB
     Indication: Product used for unknown indication

REACTIONS (12)
  - Asthma [Unknown]
  - Oesophageal candidiasis [Unknown]
  - Haematocrit decreased [Not Recovered/Not Resolved]
  - Aphonia [Unknown]
  - Eosinophil count increased [Not Recovered/Not Resolved]
  - Dysphonia [Unknown]
  - Red blood cell count decreased [Recovered/Resolved]
  - Oropharyngeal candidiasis [Unknown]
  - Mean cell haemoglobin increased [Recovered/Resolved]
  - Laryngeal dyskinesia [Unknown]
  - Mean platelet volume decreased [Not Recovered/Not Resolved]
  - Basophil count increased [Recovered/Resolved]

NARRATIVE: CASE EVENT DATE: 20240429
